FAERS Safety Report 9338000 (Version 1)
Quarter: 2013Q2

REPORT INFORMATION
  Report Type: Spontaneous
  Country: GB (occurrence: GB)
  Receive Date: 20130609
  Receipt Date: 20130609
  Transmission Date: 20140414
  Serious: Yes (Hospitalization)
  Sender: FDA-Public Use
  Company Number: GB-MYLANLABS-2013S1011804

PATIENT
  Age: 68 Year
  Sex: Female
  Weight: 50.5 kg

DRUGS (16)
  1. INDAPAMIDE [Suspect]
     Indication: OEDEMA
     Route: 048
     Dates: end: 20130507
  2. FUROSEMIDE [Suspect]
     Indication: OEDEMA
     Route: 048
     Dates: start: 20130418, end: 20130507
  3. FUROSEMIDE [Suspect]
     Indication: OEDEMA
     Route: 048
     Dates: end: 20130417
  4. ALENDRONIC ACID [Concomitant]
     Indication: PRODUCT USED FOR UNKNOWN INDICATION
  5. ASPIRIN [Concomitant]
     Indication: PRODUCT USED FOR UNKNOWN INDICATION
  6. BISOPROLOL [Concomitant]
     Indication: PRODUCT USED FOR UNKNOWN INDICATION
  7. CALCICHEW D3 [Concomitant]
     Indication: PRODUCT USED FOR UNKNOWN INDICATION
  8. CARBOCISTEINE [Concomitant]
     Indication: PRODUCT USED FOR UNKNOWN INDICATION
  9. OXERUTINS [Concomitant]
     Indication: PRODUCT USED FOR UNKNOWN INDICATION
  10. PARACETAMOL [Concomitant]
     Indication: PRODUCT USED FOR UNKNOWN INDICATION
  11. PRAVASTATIN [Concomitant]
     Indication: PRODUCT USED FOR UNKNOWN INDICATION
  12. QUININE SULPHATE [Concomitant]
     Indication: PRODUCT USED FOR UNKNOWN INDICATION
  13. SALBUTAMOL [Concomitant]
     Indication: PRODUCT USED FOR UNKNOWN INDICATION
  14. SALMETEROL [Concomitant]
     Indication: PRODUCT USED FOR UNKNOWN INDICATION
  15. SENNA [Concomitant]
     Indication: PRODUCT USED FOR UNKNOWN INDICATION
  16. TIOTROPIUM [Concomitant]
     Indication: PRODUCT USED FOR UNKNOWN INDICATION

REACTIONS (5)
  - Circulatory collapse [Unknown]
  - Dizziness [Unknown]
  - Malaise [Unknown]
  - Hypokalaemia [Recovering/Resolving]
  - Hyponatraemia [Recovering/Resolving]
